FAERS Safety Report 9083615 (Version 1)
Quarter: 2013Q1

REPORT INFORMATION
  Report Type: Report from Study
  Country: US (occurrence: US)
  Receive Date: 20130131
  Receipt Date: 20130131
  Transmission Date: 20140127
  Serious: Yes (Other)
  Sender: FDA-Public Use
  Company Number: US-ABBOTT-12P-163-1010977-00

PATIENT
  Age: 67 None
  Sex: Female

DRUGS (9)
  1. HUMIRA [Suspect]
     Indication: PSORIATIC ARTHROPATHY
     Dates: start: 20120209, end: 201209
  2. HUMIRA [Suspect]
     Dates: start: 20121106
  3. LYRICA [Concomitant]
     Indication: LUMBAR SPINAL STENOSIS
     Dosage: 150-225 MG IN THE AM AND AT NIGHT (SOMETIMES AT NOON IF NEEDED)
  4. ALTACE [Concomitant]
     Indication: HYPERTENSION
     Dates: end: 2012
  5. ALTACE [Concomitant]
     Dosage: 2.5 MG DAILY
     Dates: start: 2012
  6. FISH OIL [Concomitant]
     Indication: PRODUCT USED FOR UNKNOWN INDICATION
     Dosage: 1 TAB DAILY
  7. TURMERIC [Concomitant]
     Indication: PRODUCT USED FOR UNKNOWN INDICATION
     Dosage: DAILY
  8. MULTIVITAMIN [Concomitant]
     Indication: PRODUCT USED FOR UNKNOWN INDICATION
     Dosage: 1 TAB DAILY
  9. CALCIUM [Concomitant]
     Indication: PRODUCT USED FOR UNKNOWN INDICATION
     Dosage: 1 TAB DAILY

REACTIONS (5)
  - Fall [Unknown]
  - Hand fracture [Recovered/Resolved]
  - Diarrhoea [Not Recovered/Not Resolved]
  - Arthralgia [Unknown]
  - Mobility decreased [Unknown]
